FAERS Safety Report 4369629-3 (Version None)
Quarter: 2004Q2

REPORT INFORMATION
  Report Type: 
  Country: None (occurrence: None)
  Receive Date: 20040527
  Receipt Date: 20040510
  Transmission Date: 20050107
  Serious: Yes (Other)
  Sender: FDA-Public Use
  Company Number: US_0405102969

PATIENT
  Age: 54 Year
  Sex: Female

DRUGS (4)
  1. HUMULIN N [Suspect]
  2. HUMALOG [Suspect]
  3. HUMULIN 70/30 [Suspect]
  4. LANTUS [Concomitant]

REACTIONS (5)
  - CARDIAC DISORDER [None]
  - CEREBROVASCULAR ACCIDENT [None]
  - FEELING ABNORMAL [None]
  - MOVEMENT DISORDER [None]
  - SPEECH DISORDER [None]
